FAERS Safety Report 14662596 (Version 1)
Quarter: 2018Q1

REPORT INFORMATION
  Report Type: Spontaneous
  Country: JP (occurrence: JP)
  Receive Date: 20180321
  Receipt Date: 20180321
  Transmission Date: 20180509
  Serious: Yes (Life-Threatening, Hospitalization, Other)
  Sender: FDA-Public Use
  Company Number: JP-ACCORD-064488

PATIENT
  Age: 71 Year
  Sex: Female

DRUGS (2)
  1. METHOTREXATE. [Suspect]
     Active Substance: METHOTREXATE
     Indication: RHEUMATOID ARTHRITIS
     Dosage: FOR A LONG TIME
  2. HYALURONATE SODIUM/HYALURONIC ACID [Concomitant]
     Indication: OSTEOARTHRITIS

REACTIONS (6)
  - Staphylococcal sepsis [Recovering/Resolving]
  - Intervertebral discitis [Recovering/Resolving]
  - Acute kidney injury [Recovered/Resolved]
  - Extradural abscess [Recovering/Resolving]
  - Skin infection [Recovering/Resolving]
  - Staphylococcal scalded skin syndrome [Recovering/Resolving]
